FAERS Safety Report 8607413 (Version 2)
Quarter: 2013Q3

REPORT INFORMATION
  Report Type: Spontaneous
  Country: US (occurrence: US)
  Receive Date: 20120611
  Receipt Date: 20130722
  Transmission Date: 20140515
  Serious: Yes (Hospitalization)
  Sender: FDA-Public Use
  Company Number: US-ASTRAZENECA-2012SE34888

PATIENT
  Sex: Male
  Weight: 102.1 kg

DRUGS (17)
  1. NEXIUM [Suspect]
     Indication: ABDOMINAL DISCOMFORT
     Dosage: ONCE A DAY
     Route: 048
     Dates: start: 1997, end: 2012
  2. NEXIUM [Suspect]
     Indication: GASTROOESOPHAGEAL REFLUX DISEASE
     Dosage: ONCE A DAY
     Route: 048
     Dates: start: 1997, end: 2012
  3. LOVAZA [Concomitant]
     Indication: BLOOD CHOLESTEROL ABNORMAL
  4. CARVEDILOL [Concomitant]
     Indication: HYPERTENSION
  5. GEMFIBROZIL [Concomitant]
     Indication: BLOOD CHOLESTEROL ABNORMAL
  6. METFORMIN [Concomitant]
     Indication: DIABETES MELLITUS
  7. LEVOTHYROXINE [Concomitant]
     Indication: HYPOTHYROIDISM
  8. ZIPRASIDONE [Concomitant]
     Indication: DEPRESSION
     Dosage: GENERIC
  9. LISINOPRIL [Concomitant]
     Indication: HYPERTENSION
  10. MIRTAZAPINE [Concomitant]
     Indication: DEPRESSION
  11. JANUVIA [Concomitant]
     Indication: DIABETES MELLITUS
  12. TRAZODONE [Concomitant]
     Indication: SLEEP DISORDER
  13. CRESTOR [Concomitant]
     Indication: BLOOD CHOLESTEROL ABNORMAL
  14. ENDOCET [Concomitant]
     Indication: BACK PAIN
  15. ENDOCET [Concomitant]
     Indication: ABDOMINAL PAIN UPPER
  16. LANTUS [Concomitant]
     Indication: DIABETES MELLITUS
     Dosage: 70 UNIT FOR BED TIME
  17. ASPIRIN [Concomitant]

REACTIONS (9)
  - Back disorder [Unknown]
  - Abdominal discomfort [Unknown]
  - Multiple fractures [Unknown]
  - Osteoarthritis [Unknown]
  - Osteopenia [Unknown]
  - Ankle fracture [Unknown]
  - Depression [Unknown]
  - Osteoporosis [Unknown]
  - Spinal fracture [Unknown]
